FAERS Safety Report 19688218 (Version 1)
Quarter: 2021Q3

REPORT INFORMATION
  Report Type: Spontaneous
  Country: US (occurrence: US)
  Receive Date: 20210812
  Receipt Date: 20210812
  Transmission Date: 20211014
  Serious: No
  Sender: FDA-Public Use
  Company Number: US-JNJFOC-20210752900

PATIENT
  Age: 54 Year
  Sex: Female
  Weight: 68.95 kg

DRUGS (3)
  1. COVID?19 VACCINE [Concomitant]
     Dosage: 0.3 DOSE UNITS NOT SPECIFIED
     Route: 030
     Dates: start: 20210524
  2. COVID?19 VACCINE [Concomitant]
     Indication: PRODUCT USED FOR UNKNOWN INDICATION
     Route: 030
     Dates: start: 20210503
  3. MOTRIN [Suspect]
     Active Substance: IBUPROFEN
     Indication: PAIN IN EXTREMITY
     Dosage: THAT WAS ABOUT THREE WEEKS AGO.
     Route: 065

REACTIONS (1)
  - Drug ineffective [Unknown]
